FAERS Safety Report 5157480-6 (Version None)
Quarter: 2006Q4

REPORT INFORMATION
  Report Type: 
  Country: None (occurrence: None)
  Receive Date: 20061127
  Receipt Date: 20061122
  Transmission Date: 20070319
  Serious: Yes (Other)
  Sender: FDA-Public Use
  Company Number: US-GLAXOSMITHKLINE-A0628464A

PATIENT
  Age: 32 Year
  Sex: Female

DRUGS (4)
  1. PAROXETINE HCL [Suspect]
     Dosage: 10MG PER DAY
     Route: 048
     Dates: start: 20061101
  2. PAXIL [Suspect]
     Dosage: 10MG PER DAY
     Route: 048
     Dates: start: 20010101
  3. PAXIL CR [Suspect]
     Dosage: 12.5MG PER DAY
     Route: 048
  4. XANAX [Concomitant]

REACTIONS (7)
  - ABDOMINAL PAIN [None]
  - ARTHRALGIA [None]
  - DIARRHOEA [None]
  - HEADACHE [None]
  - INSOMNIA [None]
  - PANCREATIC DISORDER [None]
  - PREMATURE LABOUR [None]
